FAERS Safety Report 8464240 (Version 7)
Quarter: 2016Q3

REPORT INFORMATION
  Report Type: Spontaneous
  Country: US (occurrence: US)
  Receive Date: 20120316
  Receipt Date: 20160801
  Transmission Date: 20161109
  Serious: Yes (Hospitalization, Other)
  Sender: FDA-Public Use
  Company Number: US-009507513-1203USA01842

PATIENT
  Sex: Female
  Weight: 72.56 kg

DRUGS (4)
  1. FOSAMAX [Suspect]
     Active Substance: ALENDRONATE SODIUM
     Dosage: 10 MG, QD
     Route: 048
     Dates: start: 20001006, end: 20010906
  2. EVISTA [Concomitant]
     Active Substance: RALOXIFENE HYDROCHLORIDE
     Indication: OSTEOPOROSIS
     Dosage: 60 MG, QD
     Route: 048
     Dates: end: 2006
  3. FOSAMAX [Suspect]
     Active Substance: ALENDRONATE SODIUM
     Indication: OSTEOPOROSIS
     Dosage: 70 MG, QW
     Route: 048
     Dates: start: 200109, end: 200607
  4. ALENDRONATE SODIUM. [Suspect]
     Active Substance: ALENDRONATE SODIUM
     Indication: OSTEOPOROSIS
     Dosage: 70 MG, QW
     Route: 048
     Dates: start: 200903, end: 201008

REACTIONS (31)
  - Intramedullary rod insertion [Unknown]
  - Device failure [Unknown]
  - Incision site erythema [Recovering/Resolving]
  - Colitis ulcerative [Unknown]
  - Meniscus injury [Unknown]
  - Bronchitis [Unknown]
  - Bronchitis [Unknown]
  - Diarrhoea [Unknown]
  - Anaemia postoperative [Unknown]
  - Dental prosthesis placement [Unknown]
  - Oral surgery [Unknown]
  - Induration [Recovering/Resolving]
  - Osteoarthritis [Unknown]
  - Large intestine polyp [Unknown]
  - Chest discomfort [Unknown]
  - Acarodermatitis [Unknown]
  - Vertigo [Unknown]
  - Sleep disorder [Unknown]
  - Wound infection [Recovering/Resolving]
  - Amnesia [Unknown]
  - Arthropod bite [Unknown]
  - Arthroscopic surgery [Unknown]
  - Laceration [Unknown]
  - Asthma [Unknown]
  - Femur fracture [Unknown]
  - Constipation [Recovered/Resolved]
  - Deafness neurosensory [Unknown]
  - Joint injury [Unknown]
  - Costochondritis [Unknown]
  - Joint range of motion decreased [Unknown]
  - Arthritis [Unknown]

NARRATIVE: CASE EVENT DATE: 200104
